FAERS Safety Report 7212273-0 (Version None)
Quarter: 2010Q4

REPORT INFORMATION
  Report Type: 
  Country: None (occurrence: None)
  Receive Date: 20101229
  Receipt Date: 20101213
  Transmission Date: 20110411
  Serious: Yes (Other)
  Sender: FDA-Public Use
  Company Number: GER/UKI/10/0011984

PATIENT
  Age: 98 Year
  Sex: Female

DRUGS (10)
  1. OMEPRAZOLE [Suspect]
     Indication: GASTROOESOPHAGEAL REFLUX DISEASE
     Dosage: 10 MG, 1 IN 1 D, ORAL
     Route: 048
  2. ADCALL-D3 (LEKOVIT CA) [Concomitant]
  3. ASPIRIN [Concomitant]
  4. BISOPROLOL (BISOPROLOL) [Concomitant]
  5. GLIPIZIDE [Concomitant]
  6. ISOSORBIDE MONONITRATE [Concomitant]
  7. LEVOTHYROXINE SODIUM (LEVOTHYROXINE) [Concomitant]
  8. NICORANDIL (NICORANDIL) [Concomitant]
  9. SIMVASTATIN [Concomitant]
  10. TRIMETHOPRIM [Concomitant]

REACTIONS (6)
  - FALL [None]
  - FEMUR FRACTURE [None]
  - GAIT DISTURBANCE [None]
  - HEADACHE [None]
  - HYPONATRAEMIA [None]
  - LETHARGY [None]
